FAERS Safety Report 5876334-0 (Version None)
Quarter: 2008Q3

REPORT INFORMATION
  Report Type: 
  Country: None (occurrence: None)
  Receive Date: 20080908
  Receipt Date: 20080826
  Transmission Date: 20090109
  Serious: Yes (Death, Hospitalization)
  Sender: FDA-Public Use
  Company Number: 2008AL008826

PATIENT
  Age: 79 Year
  Sex: Female
  Weight: 69.8539 kg

DRUGS (11)
  1. DIGOXIN [Suspect]
     Dosage: PO
     Route: 048
     Dates: end: 20080217
  2. LANTUS [Concomitant]
  3. COUMADIN [Concomitant]
  4. COREG [Concomitant]
  5. LASIX [Concomitant]
  6. PRAVACHOL [Concomitant]
  7. ZAROXOLYN [Concomitant]
  8. LISINOPRIL [Concomitant]
  9. SYNTHROID [Concomitant]
  10. ASPARIN [Concomitant]
  11. MULTI-VITAMIN [Concomitant]

REACTIONS (25)
  - AORTIC VALVE REPLACEMENT [None]
  - BRAIN DEATH [None]
  - CARDIAC FAILURE CONGESTIVE [None]
  - CARDIAC PACEMAKER INSERTION [None]
  - CAROTID ARTERY STENT INSERTION [None]
  - CEREBROVASCULAR ACCIDENT [None]
  - CONSTIPATION [None]
  - DECREASED APPETITE [None]
  - DYSLIPIDAEMIA [None]
  - DYSPNOEA EXERTIONAL [None]
  - FATIGUE [None]
  - HYPOTHYROIDISM [None]
  - INTERSTITIAL LUNG DISEASE [None]
  - NAUSEA [None]
  - OEDEMA PERIPHERAL [None]
  - PACEMAKER COMPLICATION [None]
  - PAIN IN EXTREMITY [None]
  - RASH PRURITIC [None]
  - RENAL FAILURE [None]
  - TRICUSPID VALVE REPAIR [None]
  - TYPE 2 DIABETES MELLITUS [None]
  - VOMITING [None]
  - WALKING AID USER [None]
  - WEIGHT DECREASED [None]
  - WEIGHT INCREASED [None]
